FAERS Safety Report 5119355-8 (Version None)
Quarter: 2006Q3

REPORT INFORMATION
  Report Type: 
  Country: None (occurrence: None)
  Receive Date: 20060929
  Receipt Date: 20060925
  Transmission Date: 20061208
  Serious: Yes (Other)
  Sender: FDA-Public Use
  Company Number: HQWYE196816JUL04

PATIENT
  Age: 56 Year
  Sex: Female
  Weight: 64.47 kg

DRUGS (4)
  1. PREMARIN [Suspect]
     Indication: HORMONE REPLACEMENT THERAPY
     Dosage: ORAL
     Route: 048
     Dates: start: 19961201
  2. PREMPRO [Suspect]
     Indication: MENOPAUSE
  3. ESTRATEST [Concomitant]
  4. PROVERA [Concomitant]

REACTIONS (4)
  - BREAST CANCER METASTATIC [None]
  - FIBROCYSTIC BREAST DISEASE [None]
  - METASTASES TO LYMPH NODES [None]
  - SMEAR CERVIX ABNORMAL [None]
